FAERS Safety Report 21921166 (Version 1)
Quarter: 2023Q1

REPORT INFORMATION
  Report Type: Spontaneous
  Country: US (occurrence: None)
  Receive Date: 20230120
  Receipt Date: 20230120
  Transmission Date: 20230418
  Serious: Yes (Hospitalization)
  Sender: FDA-Public Use
  Company Number: None

PATIENT
  Age: 46 Year
  Sex: Female
  Weight: 90.3 kg

DRUGS (1)
  1. NIVOLUMAB [Suspect]
     Active Substance: NIVOLUMAB
     Indication: Gestational diabetes
     Dosage: 240 MG EVERY 2 WEEKS INTRAVENOUS
     Route: 042
     Dates: start: 20161005

REACTIONS (6)
  - Psychiatric symptom [None]
  - Nausea [None]
  - Vomiting projectile [None]
  - Gastrointestinal disorder [None]
  - Nervous system disorder [None]
  - Headache [None]

NARRATIVE: CASE EVENT DATE: 20161225
